FAERS Safety Report 25095630 (Version 1)
Quarter: 2025Q1

REPORT INFORMATION
  Report Type: Spontaneous
  Country: US (occurrence: US)
  Receive Date: 20250319
  Receipt Date: 20250319
  Transmission Date: 20250409
  Serious: No
  Sender: MERZ
  Company Number: US-ACORDA-ACO_177761_2024

PATIENT
  Sex: Male

DRUGS (1)
  1. AMPYRA [Suspect]
     Active Substance: DALFAMPRIDINE
     Indication: Product used for unknown indication
     Route: 065

REACTIONS (5)
  - Liver function test increased [Unknown]
  - Hypoaesthesia [Unknown]
  - Electric shock sensation [Unknown]
  - Neck pain [Unknown]
  - Paraesthesia [Unknown]
